FAERS Safety Report 14562068 (Version 1)
Quarter: 2018Q1

REPORT INFORMATION
  Report Type: Spontaneous
  Country: DE (occurrence: DE)
  Receive Date: 20180222
  Receipt Date: 20180222
  Transmission Date: 20180509
  Serious: Yes (Other)
  Sender: FDA-Public Use
  Company Number: DE-TEVA-2018-DE-858623

PATIENT
  Age: 73 Year
  Sex: Male

DRUGS (12)
  1. TAMSULOSIN [Concomitant]
     Active Substance: TAMSULOSIN
  2. RAMIPRIL. [Concomitant]
     Active Substance: RAMIPRIL
  3. AMLODIPIN [Concomitant]
     Active Substance: AMLODIPINE BESYLATE
  4. VALSARTAN. [Concomitant]
     Active Substance: VALSARTAN
  5. LANTUS [Concomitant]
     Active Substance: INSULIN GLARGINE
  6. CLONIDIN [Concomitant]
     Active Substance: CLONIDINE
  7. ALLOPURINOL. [Concomitant]
     Active Substance: ALLOPURINOL
  8. BISOPROLOL [Concomitant]
     Active Substance: BISOPROLOL
  9. TORASEMID-RATIOPHARM 10 MG TABLETTEN [Suspect]
     Active Substance: TORSEMIDE
     Route: 048
  10. DOXAZOSIN [Concomitant]
     Active Substance: DOXAZOSIN\DOXAZOSIN MESYLATE
  11. HUMALOG [Concomitant]
     Active Substance: INSULIN LISPRO
  12. DEKRISTOL [Concomitant]
     Active Substance: CHOLECALCIFEROL

REACTIONS (3)
  - Angioedema [Not Recovered/Not Resolved]
  - Fatigue [Unknown]
  - Hypotonia [Unknown]
